FAERS Safety Report 14871810 (Version 1)
Quarter: 2018Q2

REPORT INFORMATION
  Report Type: Report from Study
  Country: US (occurrence: US)
  Receive Date: 20180509
  Receipt Date: 20180509
  Transmission Date: 20180711
  Serious: Yes (Death, Hospitalization, Other)
  Sender: FDA-Public Use
  Company Number: US-TESARO, INC-US-2017TSO01449

PATIENT

DRUGS (2)
  1. ZEJULA [Suspect]
     Active Substance: NIRAPARIB
     Dosage: 300 MG, QD
     Route: 048
     Dates: start: 2017, end: 20170707
  2. ZEJULA [Suspect]
     Active Substance: NIRAPARIB
     Indication: OVARIAN CANCER
     Dosage: 300 MG, QD
     Route: 048
     Dates: start: 20170625, end: 20170628

REACTIONS (16)
  - Supraventricular tachycardia [Recovered/Resolved]
  - Decreased appetite [Not Recovered/Not Resolved]
  - Asthenia [Not Recovered/Not Resolved]
  - Blood magnesium decreased [Recovered/Resolved]
  - Constipation [Recovered/Resolved]
  - Gangrene [Unknown]
  - Sepsis [Recovered/Resolved]
  - Intestinal obstruction [Not Recovered/Not Resolved]
  - Palpitations [Recovered/Resolved]
  - Adverse event [Unknown]
  - Malaise [Recovered/Resolved]
  - Escherichia urinary tract infection [Unknown]
  - Dehydration [Recovered/Resolved]
  - Retching [Not Recovered/Not Resolved]
  - Disease progression [Fatal]
  - Dyspnoea [Recovered/Resolved]

NARRATIVE: CASE EVENT DATE: 2017
